FAERS Safety Report 22708386 (Version 4)
Quarter: 2023Q4

REPORT INFORMATION
  Report Type: Report from Study
  Country: US (occurrence: US)
  Receive Date: 20230715
  Receipt Date: 20231212
  Transmission Date: 20240110
  Serious: No
  Sender: FDA-Public Use
  Company Number: US-002147023-NVSC2023US157068

PATIENT
  Sex: Female

DRUGS (2)
  1. KESIMPTA [Suspect]
     Active Substance: OFATUMUMAB
     Indication: Product used for unknown indication
     Dosage: UNK
     Route: 065
  2. KESIMPTA [Suspect]
     Active Substance: OFATUMUMAB
     Dosage: 20 MG, QMO
     Route: 058
     Dates: start: 20230306

REACTIONS (5)
  - Oropharyngeal pain [Recovered/Resolved]
  - Dysphonia [Not Recovered/Not Resolved]
  - Device defective [Unknown]
  - Liquid product physical issue [Unknown]
  - Injection site pain [Recovered/Resolved]
